FAERS Safety Report 17441212 (Version 1)
Quarter: 2020Q1

REPORT INFORMATION
  Report Type: Spontaneous
  Country: US (occurrence: US)
  Receive Date: 20200220
  Receipt Date: 20200220
  Transmission Date: 20200409
  Serious: No
  Sender: FDA-Public Use
  Company Number: US-009507513-2002USA007694

PATIENT
  Sex: Female

DRUGS (1)
  1. SINGULAIR [Suspect]
     Active Substance: MONTELUKAST SODIUM
     Indication: SARCOIDOSIS
     Dosage: 10 MILLIGRAM
     Route: 048

REACTIONS (1)
  - Product use in unapproved indication [Unknown]
